FAERS Safety Report 25175893 (Version 4)
Quarter: 2025Q2

REPORT INFORMATION
  Report Type: Spontaneous
  Country: ES (occurrence: ES)
  Receive Date: 20250408
  Receipt Date: 20250603
  Transmission Date: 20250717
  Serious: Yes (Hospitalization, Other)
  Sender: CELLTRION
  Company Number: ES-ROCHE-10000100417

PATIENT

DRUGS (3)
  1. BEVACIZUMAB [Suspect]
     Active Substance: BEVACIZUMAB
     Indication: Hepatic cancer
     Route: 065
     Dates: start: 202301
  2. ATEZOLIZUMAB [Suspect]
     Active Substance: ATEZOLIZUMAB
     Indication: Hepatic cancer
     Route: 065
     Dates: start: 202301
  3. HYDROCHLOROTHIAZIDE\IRBESARTAN [Concomitant]
     Active Substance: HYDROCHLOROTHIAZIDE\IRBESARTAN
     Indication: Hypertension

REACTIONS (10)
  - Tumour thrombosis [Unknown]
  - Alpha 1 foetoprotein increased [Unknown]
  - Hepatic encephalopathy [Unknown]
  - Hepatic failure [Unknown]
  - Ascites [Unknown]
  - Blood urea increased [Unknown]
  - Varices oesophageal [Unknown]
  - Anaemia [Unknown]
  - Constipation [Unknown]
  - Intentional product use issue [Unknown]
